FAERS Safety Report 4747507-5 (Version None)
Quarter: 2005Q3

REPORT INFORMATION
  Report Type: 
  Country: None (occurrence: None)
  Receive Date: 20050818
  Receipt Date: 20050622
  Transmission Date: 20060218
  Serious: Yes (Hospitalization)
  Sender: FDA-Public Use
  Company Number: US-BRISTOL-MYERS SQUIBB COMPANY-13011523

PATIENT
  Age: 59 Year
  Sex: Female

DRUGS (6)
  1. BLINDED: MURAGLITAZAR [Suspect]
     Indication: DIABETES MELLITUS NON-INSULIN-DEPENDENT
     Route: 048
     Dates: start: 20040324, end: 20050619
  2. BLINDED: PLACEBO [Suspect]
     Indication: DIABETES MELLITUS NON-INSULIN-DEPENDENT
     Route: 048
     Dates: start: 20040324, end: 20050619
  3. METFORMIN HCL [Suspect]
     Indication: DIABETES MELLITUS NON-INSULIN-DEPENDENT
     Route: 048
     Dates: start: 19980801, end: 20050801
  4. ASPIRIN [Concomitant]
     Dates: start: 20031124, end: 20050621
  5. NEXIUM [Concomitant]
     Dates: start: 20031124, end: 20050621
  6. MULTI-VITAMINS [Concomitant]
     Dates: start: 19940101, end: 20050621

REACTIONS (2)
  - ANXIETY [None]
  - MYOCARDIAL ISCHAEMIA [None]
